FAERS Safety Report 5743510-7 (Version None)
Quarter: 2008Q2

REPORT INFORMATION
  Report Type: 
  Country: None (occurrence: None)
  Receive Date: 20080519
  Receipt Date: 20080519
  Transmission Date: 20081010
  Serious: Yes (Life-Threatening, Other)
  Sender: FDA-Public Use
  Company Number: None

PATIENT
  Age: 69 Year
  Sex: Male
  Weight: 104.3273 kg

DRUGS (1)
  1. DIGOXIN 250 MCG CVS PHARMACY [Suspect]
     Indication: CARDIAC DISORDER
     Dosage: 250MCG ONCE DAILY PO
     Route: 048
     Dates: start: 20080401, end: 20080511

REACTIONS (4)
  - ASTHENIA [None]
  - DIZZINESS [None]
  - HEART RATE DECREASED [None]
  - PALPITATIONS [None]
